FAERS Safety Report 4557993-1 (Version None)
Quarter: 2005Q1

REPORT INFORMATION
  Report Type: 
  Country: None (occurrence: None)
  Receive Date: 20050121
  Receipt Date: 20040421
  Transmission Date: 20050727
  Serious: No
  Sender: FDA-Public Use
  Company Number: US-BRISTOL-MYERS SQUIBB COMPANY-12567632

PATIENT
  Age: 48 Year
  Sex: Female
  Weight: 61 kg

DRUGS (11)
  1. SERZONE [Suspect]
     Route: 048
     Dates: start: 20010301, end: 20010831
  2. ELAVIL [Concomitant]
  3. ZANAFLEX [Concomitant]
  4. PHENERGAN [Concomitant]
  5. PREMARIN [Concomitant]
  6. FLOMAX [Concomitant]
  7. PERCOCET [Concomitant]
  8. AMBIEN [Concomitant]
  9. MULTI-VITAMINS [Concomitant]
  10. CALCIUM GLUCONATE [Concomitant]
  11. MAGNESIUM [Concomitant]

REACTIONS (2)
  - ALANINE AMINOTRANSFERASE INCREASED [None]
  - ASPARTATE AMINOTRANSFERASE INCREASED [None]
